FAERS Safety Report 7201519-0 (Version None)
Quarter: 2010Q4

REPORT INFORMATION
  Report Type: 
  Country: None (occurrence: None)
  Receive Date: 20101229
  Receipt Date: 20101220
  Transmission Date: 20110411
  Serious: Yes (Other)
  Sender: FDA-Public Use
  Company Number: NL-TEVA-261013ISR

PATIENT
  Age: 77 Year
  Sex: Female

DRUGS (8)
  1. PHENPROCOUMON [Interacting]
  2. MICONAZOLE [Suspect]
     Indication: INTERTRIGO
     Dosage: 20MG/G
  3. GLIMEPIRIDE [Concomitant]
  4. SIMVASTATIN [Concomitant]
  5. METFORMIN [Concomitant]
  6. LOSARTAN [Concomitant]
  7. CARVEDILOL [Concomitant]
  8. FUROSEMIDE [Concomitant]

REACTIONS (2)
  - COAGULATION TEST ABNORMAL [None]
  - DRUG INTERACTION [None]
